FAERS Safety Report 5910467-5 (Version None)
Quarter: 2008Q4

REPORT INFORMATION
  Report Type: 
  Country: None (occurrence: None)
  Receive Date: 20081006
  Receipt Date: 20081006
  Transmission Date: 20090506
  Serious: Yes (Other)
  Sender: FDA-Public Use
  Company Number: None

PATIENT
  Age: 24 Year
  Sex: Female
  Weight: 57.1532 kg

DRUGS (1)
  1. ACCUTANE [Suspect]
     Indication: ACNE
     Dosage: 40 MG 1 DAY PO;  80 MG OTHER DAY PO
     Route: 048
     Dates: start: 20010601, end: 20020201

REACTIONS (4)
  - DISCOMFORT [None]
  - LIBIDO DECREASED [None]
  - PAIN [None]
  - PARAESTHESIA [None]
